FAERS Safety Report 12222657 (Version 1)
Quarter: 2016Q1

REPORT INFORMATION
  Report Type: Spontaneous
  Country: US (occurrence: US)
  Receive Date: 20160330
  Receipt Date: 20160330
  Transmission Date: 20160526
  Serious: No
  Sender: FDA-Public Use
  Company Number: US-MYLANLABS-2016M1004255

PATIENT
  Sex: Male

DRUGS (2)
  1. TYLENOL [Concomitant]
     Active Substance: ACETAMINOPHEN
     Indication: PAIN
     Dosage: UNK
  2. FENTANYL. [Suspect]
     Active Substance: FENTANYL
     Indication: PAIN
     Dosage: 150 ?G, QH, CHANGE Q48H
     Route: 062
     Dates: end: 201512

REACTIONS (1)
  - Drug screen false positive [Recovered/Resolved]

NARRATIVE: CASE EVENT DATE: 20160126
